FAERS Safety Report 8484280-1 (Version None)
Quarter: 2012Q3

REPORT INFORMATION
  Report Type: 
  Country: None (occurrence: None)
  Receive Date: 20120703
  Receipt Date: 20120622
  Transmission Date: 20120928
  Serious: Yes (Hospitalization)
  Sender: FDA-Public Use
  Company Number: ES-JNJFOC-20120105678

PATIENT
  Sex: Male
  Weight: 80 kg

DRUGS (2)
  1. PALIPERIDONE PALMITATE [Suspect]
     Indication: SCHIZOPHRENIA
     Route: 030
     Dates: start: 20111229
  2. PALIPERIDONE PALMITATE [Suspect]
     Route: 030
     Dates: start: 20111202

REACTIONS (1)
  - SCHIZOPHRENIA [None]
